FAERS Safety Report 23933835 (Version 4)
Quarter: 2024Q3

REPORT INFORMATION
  Report Type: Report from Study
  Country: CZ (occurrence: CZ)
  Receive Date: 20240603
  Receipt Date: 20240906
  Transmission Date: 20241016
  Serious: Yes (Hospitalization)
  Sender: ABBVIE
  Company Number: CZ-ABBVIE-5780422

PATIENT
  Age: 71 Year
  Sex: Male
  Weight: 92 kg

DRUGS (8)
  1. RISANKIZUMAB [Suspect]
     Active Substance: RISANKIZUMAB
     Indication: Psoriasis
     Dosage: HIGHEST MAINTENANCE DOSE: 150 MG  PER MONTH
     Route: 058
     Dates: start: 20211020, end: 20211115
  2. RISANKIZUMAB [Suspect]
     Active Substance: RISANKIZUMAB
     Dosage: HIGHEST MAINTENANCE DOSE: 150 MG  PER 3 MONTHS
     Route: 058
     Dates: start: 20211116
  3. AMLODIPINE BESYLATE\PERINDOPRIL ERBUMINE [Concomitant]
     Active Substance: AMLODIPINE BESYLATE\PERINDOPRIL ERBUMINE
     Indication: Product used for unknown indication
     Dosage: 8 MG/5 MG?FREQUENCY TEXT: 1-0-0
  4. ASPIRIN [Concomitant]
     Active Substance: ASPIRIN
     Indication: Ischaemic heart disease prophylaxis
     Dosage: FREQUENCY TEXT: EVERY 24 HOURS
     Route: 048
     Dates: start: 2010
  5. INDAPAMIDE [Concomitant]
     Active Substance: INDAPAMIDE
     Indication: Hypertension
     Dosage: FREQUENCY TEXT: EVERY 24 HOURS
     Route: 048
     Dates: start: 202306
  6. PERINDOPRILUM-TERT-BUTYLAMINUM [Concomitant]
     Indication: Hypertension
     Dosage: FREQUENCY TEXT: EVERY 24 HOURS
     Route: 048
     Dates: start: 2010
  7. AMLODIPINI BESILAS [Concomitant]
     Indication: Hypertension
     Dosage: FREQUENCY TEXT: EVERY 24 HOURS
     Route: 048
     Dates: start: 2010
  8. ASPIRIN [Concomitant]
     Active Substance: ASPIRIN
     Indication: Product used for unknown indication
     Dosage: FREQUENCY TEXT: 1-0-0

REACTIONS (2)
  - Appendix disorder [Recovered/Resolved]
  - Abdominal pain [Recovered/Resolved]

NARRATIVE: CASE EVENT DATE: 20240324
